FAERS Safety Report 12957699 (Version 1)
Quarter: 2016Q4

REPORT INFORMATION
  Report Type: Report from Study
  Country: US (occurrence: US)
  Receive Date: 20161118
  Receipt Date: 20161118
  Transmission Date: 20170207
  Serious: Yes (Hospitalization)
  Sender: FDA-Public Use
  Company Number: US-ACTELION-A-US2016-143869

PATIENT
  Age: 44 Year
  Sex: Female

DRUGS (2)
  1. OPSUMIT [Suspect]
     Active Substance: MACITENTAN
     Indication: PULMONARY ARTERIAL HYPERTENSION
     Dosage: 10 MG, QD
     Route: 048
     Dates: start: 20160609
  2. ADCIRCA [Concomitant]
     Active Substance: TADALAFIL

REACTIONS (13)
  - Syncope [Unknown]
  - Musculoskeletal pain [Unknown]
  - Chest pain [Unknown]
  - Back pain [Unknown]
  - Blood glucose decreased [Unknown]
  - Dizziness [Unknown]
  - Palpitations [Unknown]
  - Muscular weakness [Unknown]
  - Presyncope [Unknown]
  - Myalgia [Unknown]
  - Epistaxis [Unknown]
  - Pulmonary oedema [Unknown]
  - Pneumonia [Unknown]

NARRATIVE: CASE EVENT DATE: 20161105
